FAERS Safety Report 6417793-4 (Version None)
Quarter: 2009Q4

REPORT INFORMATION
  Report Type: 
  Country: None (occurrence: None)
  Receive Date: 20091028
  Receipt Date: 20091023
  Transmission Date: 20100525
  Serious: Yes (Hospitalization, Other)
  Sender: FDA-Public Use
  Company Number: US-JNJFOC-20061005970

PATIENT
  Sex: Male

DRUGS (2)
  1. RISPERDAL [Suspect]
  2. RISPERDAL [Suspect]
     Indication: SCHIZOPHRENIA

REACTIONS (6)
  - CONVULSION [None]
  - HYPONATRAEMIA [None]
  - RESTLESSNESS [None]
  - SOMNOLENCE [None]
  - TARDIVE DYSKINESIA [None]
  - WEIGHT INCREASED [None]
